FAERS Safety Report 7651196-X (Version None)
Quarter: 2011Q3

REPORT INFORMATION
  Report Type: 
  Country: None (occurrence: None)
  Receive Date: 20110802
  Receipt Date: 20110728
  Transmission Date: 20111222
  Serious: Yes (Death, Hospitalization)
  Sender: FDA-Public Use
  Company Number: CA-CELGENEUS-028-C5013-10123102

PATIENT
  Sex: Male
  Weight: 62 kg

DRUGS (38)
  1. FOLIC ACID [Concomitant]
     Indication: VITAMIN SUPPLEMENTATION
     Dosage: 5 MILLIGRAM
     Route: 048
     Dates: start: 20101105
  2. NEUPOGEN [Concomitant]
     Dosage: 300 MICROGRAM
     Route: 058
     Dates: start: 20110113, end: 20110117
  3. NORVASC [Concomitant]
     Indication: HYPERTENSION
     Dosage: 5 MILLIGRAM
     Route: 048
     Dates: start: 20070101
  4. SLOW-K [Concomitant]
     Route: 048
     Dates: start: 20101022, end: 20101102
  5. LENALIDOMIDE [Suspect]
     Dosage: 10 MILLIGRAM
     Route: 048
     Dates: start: 20101123, end: 20101220
  6. ASPIRIN [Concomitant]
     Indication: THROMBOSIS PROPHYLAXIS
     Dosage: 81 MILLIGRAM
     Route: 048
     Dates: start: 19990101
  7. NITRO-DUR [Concomitant]
     Indication: HYPERTENSION
     Dosage: .8 MILLIGRAM
     Route: 048
     Dates: start: 20060101
  8. METFORMIN HCL [Concomitant]
     Dosage: 1000 MILLIGRAM
     Route: 048
     Dates: start: 20100112
  9. VITAMIN B-12 [Concomitant]
     Indication: VITAMIN SUPPLEMENTATION
     Dosage: 1000 MILLIGRAM
     Route: 048
     Dates: start: 20101105
  10. PANTOPRAZOLE SODIUM [Concomitant]
     Dosage: 40 MILLIGRAM
     Route: 048
     Dates: start: 20100713
  11. MAGNESIUM [Concomitant]
     Dosage: 200 MILLIGRAM
     Route: 048
     Dates: start: 20101123
  12. DEXAMETHASONE [Suspect]
     Indication: MULTIPLE MYELOMA
     Dosage: 20 MILLIGRAM
     Route: 065
     Dates: start: 20091215
  13. FERROUS GLUCONATE [Concomitant]
     Dosage: 300 MILLIGRAM
     Route: 048
     Dates: start: 20070101
  14. METFORMIN HCL [Concomitant]
     Dosage: 500 MILLIGRAM
     Route: 048
     Dates: start: 20060101
  15. IMODIUM [Concomitant]
     Dosage: 2 MILLIGRAM
     Route: 048
     Dates: start: 20100405
  16. AMOXICILLIN AND CLAVULANATE POTASSIUM [Concomitant]
     Dosage: 850 MILLIGRAM
     Route: 048
     Dates: start: 20101019
  17. ATACAND [Concomitant]
     Indication: HYPERTENSION
     Dosage: 16 MILLIGRAM
     Route: 048
     Dates: start: 20070101
  18. NEUPOGEN [Concomitant]
     Dosage: 300 MICROGRAM
     Route: 058
     Dates: start: 20101216, end: 20101220
  19. CHLORPROMAZINE [Concomitant]
     Indication: HICCUPS
     Route: 048
     Dates: start: 20100129, end: 20100201
  20. DEXAMETHASONE [Suspect]
     Route: 065
     Dates: start: 20101123, end: 20101220
  21. LEVOTHYROXINE SODIUM [Concomitant]
     Indication: HYPOTHYROIDISM
     Dosage: .15 MILLIGRAM
     Route: 048
     Dates: start: 19890101
  22. GLYBURIDE [Concomitant]
     Dosage: 2.5 MILLIGRAM
     Route: 048
     Dates: start: 20100316
  23. NEUPOGEN [Concomitant]
     Indication: PROPHYLAXIS
     Dosage: 300 MICROGRAM
     Route: 058
     Dates: start: 20101116, end: 20101122
  24. NEUPOGEN [Concomitant]
     Dosage: 300 MICROGRAM
     Route: 058
     Dates: start: 20100210, end: 20100315
  25. NEUPOGEN [Concomitant]
     Dosage: 300 MICROGRAM
     Route: 058
     Dates: start: 20100921, end: 20100927
  26. KEFLEX [Concomitant]
     Dosage: 500 MILLIGRAM
     Route: 048
     Dates: start: 20100819, end: 20100827
  27. MOXIFLOXACIN [Concomitant]
     Dosage: 400 MILLIGRAM
     Route: 048
     Dates: start: 20101013, end: 20101018
  28. BISOPROLOL FUMARATE [Concomitant]
     Indication: HYPERTENSION
     Dosage: 10 MILLIGRAM
     Route: 048
     Dates: start: 20050101
  29. PAMIDRONATE DISODIUM [Concomitant]
     Indication: PROPHYLAXIS
     Dosage: 90 MILLIGRAM
     Route: 041
     Dates: start: 20100423
  30. CALCIUM ACETATE [Concomitant]
     Dosage: 500 MILLIGRAM
     Route: 048
     Dates: start: 20101123
  31. LEVOFLOXACIN [Concomitant]
     Indication: INFECTION PROPHYLAXIS
     Route: 048
     Dates: start: 20100202, end: 20100216
  32. LENALIDOMIDE [Suspect]
     Indication: MULTIPLE MYELOMA
     Dosage: 10 MILLIGRAM
     Route: 048
     Dates: start: 20091215
  33. LIPITOR [Concomitant]
     Dosage: 10 MILLIGRAM
     Route: 048
     Dates: start: 20040101
  34. RAMIPRIL [Concomitant]
     Indication: HYPERTENSION
     Dosage: 5 MILLIGRAM
     Route: 048
     Dates: start: 19990101
  35. NEUPOGEN [Concomitant]
     Dosage: 300 MICROGRAM
     Route: 058
     Dates: start: 20101019, end: 20101021
  36. SODIUM CHLORIDE [Concomitant]
     Indication: DEHYDRATION
     Dosage: 500 MILLILITER
     Route: 041
     Dates: start: 20100202, end: 20100202
  37. EPEX [Concomitant]
     Indication: NEUTROPENIA
     Dosage: 60000 IU (INTERNATIONAL UNIT)
     Route: 058
     Dates: start: 20100211, end: 20101123
  38. TYLENOL-500 [Concomitant]
     Dosage: 325 MILLIGRAM
     Route: 048
     Dates: start: 20101012, end: 20101014

REACTIONS (2)
  - DEATH [None]
  - CARDIO-RESPIRATORY ARREST [None]
